FAERS Safety Report 5493446-4 (Version None)
Quarter: 2007Q4

REPORT INFORMATION
  Report Type: 
  Country: None (occurrence: None)
  Receive Date: 20071022
  Receipt Date: 20071022
  Transmission Date: 20080405
  Serious: No
  Sender: FDA-Public Use
  Company Number: None

PATIENT
  Age: 47 Year
  Sex: Male
  Weight: 90.7194 kg

DRUGS (1)
  1. HALFLYTELY [Suspect]
     Indication: BOWEL PREPARATION
     Dosage: 32 OZ. 8OZ Q15 MINUTES PO
     Route: 048
     Dates: start: 20071016, end: 20071016

REACTIONS (1)
  - ERYTHEMA MULTIFORME [None]
